FAERS Safety Report 15585312 (Version 1)
Quarter: 2018Q4

REPORT INFORMATION
  Report Type: Spontaneous
  Country: US (occurrence: US)
  Receive Date: 20181102
  Receipt Date: 20181102
  Transmission Date: 20190205
  Serious: Yes (Other)
  Sender: FDA-Public Use
  Company Number: US-TEVA-2018-US-968872

PATIENT
  Age: 43 Year
  Sex: Female
  Weight: 45.4 kg

DRUGS (7)
  1. LEVOTHYROXINE. [Concomitant]
     Active Substance: LEVOTHYROXINE
     Route: 065
  2. OXYCODONE [Concomitant]
     Active Substance: OXYCODONE
     Route: 065
  3. VALIUM [Suspect]
     Active Substance: DIAZEPAM
     Dosage: 10 MILLIGRAM DAILY;
     Route: 065
     Dates: start: 201809
  4. LEVETIRACETAM. [Suspect]
     Active Substance: LEVETIRACETAM
     Indication: EPILEPSY
     Dosage: 1000 MILLIGRAM DAILY;
     Route: 048
     Dates: start: 201808, end: 20180911
  5. VALIUM [Suspect]
     Active Substance: DIAZEPAM
     Dosage: 20 MILLIGRAM DAILY;
     Route: 065
     Dates: start: 2003, end: 20180907
  6. OXYMORPHONE [Concomitant]
     Active Substance: OXYMORPHONE
     Route: 065
  7. BACLOFEN. [Suspect]
     Active Substance: BACLOFEN
     Route: 065
     Dates: start: 20180907, end: 201809

REACTIONS (13)
  - Diarrhoea [Recovering/Resolving]
  - Oropharyngeal pain [Not Recovered/Not Resolved]
  - Insomnia [Recovering/Resolving]
  - Agitation [Recovering/Resolving]
  - Complication associated with device [Recovering/Resolving]
  - Screaming [Recovering/Resolving]
  - Hypophagia [Recovering/Resolving]
  - Belligerence [Recovering/Resolving]
  - Memory impairment [Not Recovered/Not Resolved]
  - Blood pressure increased [Recovering/Resolving]
  - Aggression [Recovering/Resolving]
  - Urine output decreased [Recovering/Resolving]
  - Seizure [Recovering/Resolving]

NARRATIVE: CASE EVENT DATE: 2018
